FAERS Safety Report 14332463 (Version 7)
Quarter: 2018Q2

REPORT INFORMATION
  Report Type: Report from Study
  Country: JP (occurrence: JP)
  Receive Date: 20171228
  Receipt Date: 20180608
  Transmission Date: 20180711
  Serious: Yes (Hospitalization)
  Sender: FDA-Public Use
  Company Number: JP-ROCHE-2045780

PATIENT
  Age: 44 Year
  Sex: Female
  Weight: 50 kg

DRUGS (20)
  1. HYDROCORTISONE. [Concomitant]
     Active Substance: HYDROCORTISONE
     Indication: RASH
     Route: 061
     Dates: start: 20171115, end: 20171121
  2. VONOPRAZAN FUMARATE [Concomitant]
     Active Substance: VONOPRAZAN FUMURATE
     Indication: NAUSEA
     Route: 065
     Dates: start: 20171121
  3. NAB-PACLITAXEL [Suspect]
     Active Substance: PACLITAXEL
     Indication: TRIPLE NEGATIVE BREAST CANCER
     Dosage: DATE OF MOST RECENT DOSE (181 MG) ON 05/DEC/2017 AT 14.40
     Route: 042
     Dates: start: 20170926
  4. REBAMIPIDE [Concomitant]
     Active Substance: REBAMIPIDE
     Indication: GASTRITIS
     Route: 065
     Dates: start: 20171003, end: 20171219
  5. SENNOSIDE A+B [Concomitant]
     Active Substance: SENNOSIDES A AND B
     Indication: CONSTIPATION
     Route: 065
     Dates: start: 20171114
  6. LOXOPROFEN SODIUM HYDRATE [Concomitant]
     Active Substance: LOXOPROFEN SODIUM DIHYDRATE
     Indication: HEADACHE
  7. RINDERON VG [Concomitant]
     Active Substance: BETAMETHASONE VALERATE\GENTAMICIN SULFATE
     Indication: RASH
     Dosage: PRN (AS NEEDED)
     Route: 061
     Dates: start: 20171017, end: 20171121
  8. MAGNESIUM OXIDE. [Concomitant]
     Active Substance: MAGNESIUM OXIDE
     Indication: CONSTIPATION
     Route: 065
     Dates: start: 20171114, end: 20171128
  9. SALICYLIC ACID. [Concomitant]
     Active Substance: SALICYLIC ACID
     Indication: DRY SKIN
     Route: 065
     Dates: start: 20171219
  10. FLUOCINONIDE. [Concomitant]
     Active Substance: FLUOCINONIDE
     Indication: RASH
     Dosage: DOSE: 0.05
     Route: 061
     Dates: start: 20171115
  11. CLOBETASOL PROPIONATE. [Concomitant]
     Active Substance: CLOBETASOL PROPIONATE
     Indication: RASH
     Route: 061
     Dates: start: 20171219
  12. ATEZOLIZUMAB. [Suspect]
     Active Substance: ATEZOLIZUMAB
     Indication: TRIPLE NEGATIVE BREAST CANCER
     Dosage: DATE OF MOST RECENT DOSE PRIOR TO EVENT ONSET ON 05/DEC/2017 AT 14.02
     Route: 042
     Dates: start: 20170926
  13. LOXOPROFEN SODIUM HYDRATE [Concomitant]
     Active Substance: LOXOPROFEN SODIUM DIHYDRATE
     Indication: ARTHRALGIA
     Route: 065
     Dates: start: 20171003, end: 20171219
  14. SODIUM GUALENATE HYDRATE [Concomitant]
     Active Substance: SODIUM GUALENATE MONOHYDRATE
     Indication: STOMATITIS
     Route: 065
     Dates: start: 20171003
  15. PROPETO [Concomitant]
     Indication: DRY SKIN
     Route: 065
     Dates: start: 20171115
  16. DEXAMETHASONE. [Concomitant]
     Active Substance: DEXAMETHASONE
     Indication: STOMATITIS
     Route: 065
     Dates: start: 20171003
  17. RINDERON VG [Concomitant]
     Active Substance: BETAMETHASONE VALERATE\GENTAMICIN SULFATE
     Route: 061
     Dates: start: 20171107, end: 20171121
  18. HEPARINOID [Concomitant]
     Active Substance: CHONDROITIN SULFATE (BOVINE)
     Indication: DRY SKIN
     Route: 065
     Dates: start: 20171031
  19. DIPHENHYDRAMINE LAURYLSULFATE [Concomitant]
     Indication: RASH
     Route: 065
     Dates: start: 20171219
  20. FEXOFENADINE HYDROCHLORIDE. [Concomitant]
     Active Substance: FEXOFENADINE HYDROCHLORIDE
     Indication: RASH
     Route: 065
     Dates: start: 20171219

REACTIONS (2)
  - Hepatic function abnormal [Recovered/Resolved]
  - Diabetes mellitus [Not Recovered/Not Resolved]

NARRATIVE: CASE EVENT DATE: 20171212
